FAERS Safety Report 5048672-5 (Version None)
Quarter: 2006Q2

REPORT INFORMATION
  Report Type: 
  Country: None (occurrence: None)
  Receive Date: 20060601
  Receipt Date: 20060216
  Transmission Date: 20061013
  Serious: No
  Sender: FDA-Public Use
  Company Number: 2006PV008785

PATIENT
  Age: 60 Year
  Sex: Female
  Weight: 101.6057 kg

DRUGS (8)
  1. BYETTA [Suspect]
     Indication: DIABETES MELLITUS NON-INSULIN-DEPENDENT
     Dosage: 5 MCG;BID;SC
     Route: 058
     Dates: start: 20060214
  2. STARLIX [Concomitant]
  3. METFORMIN [Concomitant]
  4. AMARYL [Concomitant]
  5. NASACORT [Concomitant]
  6. AUGMENTIN [Concomitant]
  7. ARIMEDEX [Concomitant]
  8. TUSSIONEX ^RHONE-POULENC RORER^ [Concomitant]

REACTIONS (3)
  - FEELING ABNORMAL [None]
  - NAUSEA [None]
  - NERVOUSNESS [None]
